FAERS Safety Report 12524423 (Version 2)
Quarter: 2016Q3

REPORT INFORMATION
  Report Type: Report from Study
  Country: AU (occurrence: AU)
  Receive Date: 20160704
  Receipt Date: 20160714
  Transmission Date: 20161109
  Serious: Yes (Other)
  Sender: FDA-Public Use
  Company Number: AU-ROCHE-1690145

PATIENT
  Age: 58 Year
  Sex: Female

DRUGS (4)
  1. ACTEMRA [Suspect]
     Active Substance: TOCILIZUMAB
     Indication: RHEUMATOID ARTHRITIS
     Route: 042
     Dates: start: 20121026
  2. ACTEMRA [Suspect]
     Active Substance: TOCILIZUMAB
     Route: 042
     Dates: start: 20160401
  3. ESTALIS [Concomitant]
     Active Substance: ESTRADIOL\NORETHINDRONE ACETATE
     Dosage: 1 PATCH, DOSE- 50/250, ONGOING
     Route: 065
     Dates: start: 20141230
  4. SOMAC [Concomitant]
     Active Substance: PANTOPRAZOLE SODIUM
     Dosage: ONGOING, EVERY NIGHT
     Route: 048
     Dates: start: 201511

REACTIONS (4)
  - Arthralgia [Unknown]
  - Haematuria [Recovered/Resolved]
  - Rectal cancer [Unknown]
  - Rectal polyp [Unknown]

NARRATIVE: CASE EVENT DATE: 20151231
